FAERS Safety Report 4687722-2 (Version None)
Quarter: 2005Q2

REPORT INFORMATION
  Report Type: 
  Country: None (occurrence: None)
  Receive Date: 20050608
  Receipt Date: 20050608
  Transmission Date: 20051028
  Serious: No
  Sender: FDA-Public Use
  Company Number: None

PATIENT
  Age: 69 Year
  Sex: Female

DRUGS (1)
  1. CORDIS SIROLIMUS - DRUG ELUTING CORONARY STENTS [Suspect]

REACTIONS (5)
  - ACUTE MYOCARDIAL INFARCTION [None]
  - HAEMORRHAGE [None]
  - PAIN [None]
  - PROCEDURAL COMPLICATION [None]
  - THROMBOSIS [None]
